FAERS Safety Report 8544794-2 (Version None)
Quarter: 2012Q3

REPORT INFORMATION
  Report Type: 
  Country: None (occurrence: None)
  Receive Date: 20120727
  Receipt Date: 20120720
  Transmission Date: 20120928
  Serious: Yes (Other)
  Sender: FDA-Public Use
  Company Number: US-BAYER-2012-046492

PATIENT
  Age: 39 Year
  Sex: Female

DRUGS (3)
  1. ALBUTEROL [Concomitant]
  2. BEYAZ [Suspect]
     Indication: MENSTRUAL CYCLE MANAGEMENT
  3. BEYAZ [Suspect]
     Indication: MENORRHAGIA
     Dosage: 1 DF, QD
     Route: 048
     Dates: start: 20110927, end: 20111101

REACTIONS (2)
  - MYOCARDIAL INFARCTION [None]
  - INTRACARDIAC THROMBUS [None]
